FAERS Safety Report 11300425 (Version 1)
Quarter: 2015Q3

REPORT INFORMATION
  Report Type: Spontaneous
  Country: US (occurrence: US)
  Receive Date: 20150722
  Receipt Date: 20150722
  Transmission Date: 20151125
  Serious: No
  Sender: FDA-Public Use
  Company Number: US-ELI_LILLY_AND_COMPANY-US201311004593

PATIENT
  Age: 1 Year
  Sex: Female

DRUGS (2)
  1. HUMATROPE [Suspect]
     Active Substance: SOMATROPIN
     Indication: HYPOPITUITARISM
  2. HUMATROPE [Suspect]
     Active Substance: SOMATROPIN
     Indication: CONGENITAL HYPOTHYROIDISM
     Dosage: 0.4 MG, QD
     Route: 065
     Dates: start: 201307

REACTIONS (1)
  - Underdose [Unknown]

NARRATIVE: CASE EVENT DATE: 20131022
